FAERS Safety Report 5549304-X (Version None)
Quarter: 2007Q4

REPORT INFORMATION
  Report Type: 
  Country: None (occurrence: None)
  Receive Date: 20071212
  Receipt Date: 20071205
  Transmission Date: 20080405
  Serious: Yes (Hospitalization, Disabling, Other)
  Sender: FDA-Public Use
  Company Number: US-MERCK-0711USA05861

PATIENT
  Age: 86 Year
  Sex: Female

DRUGS (7)
  1. FOSAMAX [Suspect]
     Indication: OSTEOPOROSIS
     Route: 048
     Dates: end: 20060101
  2. FOSAMAX [Suspect]
     Route: 048
     Dates: start: 19960101
  3. TENORMIN [Concomitant]
     Route: 065
  4. DIOVAN [Concomitant]
     Route: 065
  5. ADVAIR DISKUS 100/50 [Concomitant]
     Route: 065
  6. CALCIUM (UNSPECIFIED) [Concomitant]
     Route: 065
  7. TRILISATE TABLETS/LIQUID [Concomitant]
     Route: 065

REACTIONS (4)
  - ASTHENIA [None]
  - ATRIAL FIBRILLATION [None]
  - DYSPNOEA [None]
  - RESPIRATORY TRACT INFECTION [None]
